FAERS Safety Report 6114436-4 (Version None)
Quarter: 2009Q1

REPORT INFORMATION
  Report Type: 
  Country: None (occurrence: None)
  Receive Date: 20090313
  Receipt Date: 20090303
  Transmission Date: 20090719
  Serious: Yes (Hospitalization, Other)
  Sender: FDA-Public Use
  Company Number: PHHY2009JP07950

PATIENT
  Sex: Male

DRUGS (3)
  1. TASIGNA [Suspect]
     Indication: CHRONIC MYELOID LEUKAEMIA
     Dosage: 400MG/DAY
     Route: 048
     Dates: start: 20090227, end: 20090227
  2. TASIGNA [Suspect]
     Dosage: 800MG/DAY
     Route: 048
     Dates: start: 20090228, end: 20090301
  3. TASIGNA [Suspect]
     Dosage: 400MG/DAY
     Route: 048
     Dates: start: 20090302, end: 20090303

REACTIONS (3)
  - ANOREXIA [None]
  - ASCITES [None]
  - ELECTROCARDIOGRAM QT PROLONGED [None]
